FAERS Safety Report 8227200-7 (Version None)
Quarter: 2012Q1

REPORT INFORMATION
  Report Type: 
  Country: None (occurrence: None)
  Receive Date: 20120307
  Receipt Date: 20100128
  Transmission Date: 20120608
  Serious: Yes (Death, Hospitalization, Other)
  Sender: FDA-Public Use
  Company Number: PHEH2010US01595

PATIENT
  Sex: Male

DRUGS (1)
  1. AFINITOR [Suspect]

REACTIONS (1)
  - RENAL FAILURE [None]
